FAERS Safety Report 16514832 (Version 3)
Quarter: 2019Q3

REPORT INFORMATION
  Report Type: Spontaneous
  Country: US (occurrence: US)
  Receive Date: 20190702
  Receipt Date: 20190731
  Transmission Date: 20191004
  Serious: Yes (Other)
  Sender: FDA-Public Use
  Company Number: US-PFIZER INC-2019266968

PATIENT
  Age: 83 Year
  Sex: Male
  Weight: 78.5 kg

DRUGS (1)
  1. ALPRAZOLAM. [Suspect]
     Active Substance: ALPRAZOLAM
     Indication: PANIC ATTACK
     Dosage: 1 MG, DAILY

REACTIONS (4)
  - Coronary artery occlusion [Unknown]
  - Drug dependence [Unknown]
  - Auditory disorder [Unknown]
  - Drug ineffective [Unknown]
